FAERS Safety Report 23014238 (Version 1)
Quarter: 2023Q4

REPORT INFORMATION
  Report Type: Other
  Country: US (occurrence: None)
  Receive Date: 20231002
  Receipt Date: 20231002
  Transmission Date: 20240109
  Serious: Yes (Hospitalization)
  Sender: FDA-Public Use
  Company Number: US-ROCHE-3425447

PATIENT
  Age: 54 Year
  Sex: Male
  Weight: 172.52 kg

DRUGS (17)
  1. OCREVUS [Suspect]
     Active Substance: OCRELIZUMAB
     Indication: Relapsing multiple sclerosis
     Dosage: INFUSE 300 MG DAY 1 X DAY 15, 600MG Q 6 MONTHS
     Route: 065
     Dates: start: 20220415
  2. METFORMIN [Concomitant]
     Active Substance: METFORMIN HYDROCHLORIDE
  3. FLECAINIDE [Concomitant]
     Active Substance: FLECAINIDE
  4. METOPROLOL [Concomitant]
     Active Substance: METOPROLOL
  5. BUSPAR [Concomitant]
     Active Substance: BUSPIRONE HYDROCHLORIDE
  6. OXCARBAZEPINE [Concomitant]
     Active Substance: OXCARBAZEPINE
  7. TAMSULOSIN [Concomitant]
     Active Substance: TAMSULOSIN
  8. HYDROCHLOROTHIAZIDE\LISINOPRIL [Concomitant]
     Active Substance: HYDROCHLOROTHIAZIDE\LISINOPRIL
  9. MIRTAZAPINE [Concomitant]
     Active Substance: MIRTAZAPINE
  10. SIMVASTATIN [Concomitant]
     Active Substance: SIMVASTATIN
  11. NORTRIPTYLINE [Concomitant]
     Active Substance: NORTRIPTYLINE
  12. VERAPAMIL [Concomitant]
     Active Substance: VERAPAMIL HYDROCHLORIDE
  13. DULOXETINE [Concomitant]
     Active Substance: DULOXETINE
  14. ELIQUIS [Concomitant]
     Active Substance: APIXABAN
  15. MONTELUKAST [Concomitant]
     Active Substance: MONTELUKAST SODIUM
  16. OXYCODONE [Concomitant]
     Active Substance: OXYCODONE
  17. ZYRTEC [Concomitant]
     Active Substance: CETIRIZINE HYDROCHLORIDE

REACTIONS (9)
  - Colitis [Recovered/Resolved]
  - Arthritis bacterial [Recovered/Resolved]
  - Atrial fibrillation [Not Recovered/Not Resolved]
  - Arthritis [Not Recovered/Not Resolved]
  - Lower respiratory tract congestion [Unknown]
  - Fall [Unknown]
  - Skin abrasion [Recovering/Resolving]
  - Asthenia [Not Recovered/Not Resolved]
  - Pain [Not Recovered/Not Resolved]

NARRATIVE: CASE EVENT DATE: 20230801
